FAERS Safety Report 5465954-3 (Version None)
Quarter: 2007Q3

REPORT INFORMATION
  Report Type: 
  Country: None (occurrence: None)
  Receive Date: 20070924
  Receipt Date: 20070921
  Transmission Date: 20080115
  Serious: Yes (Hospitalization)
  Sender: FDA-Public Use
  Company Number: ZA-BRISTOL-MYERS SQUIBB COMPANY-13633300

PATIENT
  Age: 38 Year
  Sex: Male

DRUGS (5)
  1. ATAZANAVIR SULFATE [Suspect]
     Indication: HIV INFECTION
     Route: 048
     Dates: start: 20010907
  2. STAVUDINE [Suspect]
     Route: 048
     Dates: start: 20010907, end: 20061222
  3. LAMIVUDINE [Suspect]
     Route: 048
     Dates: start: 20010907, end: 20061222
  4. PRAVASTATIN SODIUM [Concomitant]
     Dates: start: 20060421
  5. GEMFIBROZIL [Concomitant]
     Dates: start: 20060421

REACTIONS (1)
  - LIPOMA [None]
